FAERS Safety Report 12510802 (Version 1)
Quarter: 2016Q2

REPORT INFORMATION
  Report Type: Spontaneous
  Country: US (occurrence: US)
  Receive Date: 20160629
  Receipt Date: 20160629
  Transmission Date: 20160815
  Serious: Yes (Death)
  Sender: FDA-Public Use
  Company Number: US-LUNDBECK-DKLU2015754

PATIENT
  Age: 8 Year
  Sex: Female

DRUGS (3)
  1. SABRIL [Suspect]
     Active Substance: VIGABATRIN
     Indication: EPILEPSY
     Route: 048
     Dates: start: 20130909
  2. SABRIL [Suspect]
     Active Substance: VIGABATRIN
     Route: 048
     Dates: start: 20131102, end: 20160605
  3. SABRIL [Suspect]
     Active Substance: VIGABATRIN
     Indication: INFANTILE SPASMS
     Route: 048
     Dates: start: 20130909

REACTIONS (1)
  - Death [Fatal]

NARRATIVE: CASE EVENT DATE: 20160605
